FAERS Safety Report 7017329-3 (Version None)
Quarter: 2010Q3

REPORT INFORMATION
  Report Type: 
  Country: None (occurrence: None)
  Receive Date: 20100928
  Receipt Date: 20100922
  Transmission Date: 20110219
  Serious: No
  Sender: FDA-Public Use
  Company Number: US-BIOGENIDEC-2010BI032803

PATIENT
  Age: 46 Year
  Sex: Female

DRUGS (1)
  1. AVONEX [Suspect]
     Indication: MULTIPLE SCLEROSIS
     Route: 030
     Dates: start: 20011207

REACTIONS (17)
  - APHASIA [None]
  - BACK PAIN [None]
  - CATARACT [None]
  - COGNITIVE DISORDER [None]
  - DEPRESSED MOOD [None]
  - DIABETES MELLITUS [None]
  - FATIGUE [None]
  - HEADACHE [None]
  - MEMORY IMPAIRMENT [None]
  - MENOPAUSE [None]
  - MIGRAINE [None]
  - MYOPIA [None]
  - PAIN [None]
  - SLEEP APNOEA SYNDROME [None]
  - TEMPERATURE INTOLERANCE [None]
  - URINARY INCONTINENCE [None]
  - VISUAL IMPAIRMENT [None]
